FAERS Safety Report 19193881 (Version 9)
Quarter: 2024Q3

REPORT INFORMATION
  Report Type: Spontaneous
  Country: DE (occurrence: DE)
  Receive Date: 20210429
  Receipt Date: 20240910
  Transmission Date: 20241016
  Serious: No
  Sender: ALKEM
  Company Number: DE-ALKEM LABORATORIES LIMITED-DE-ALKEM-2021-02219

PATIENT
  Age: 31 Year
  Sex: Female
  Weight: 99 kg

DRUGS (27)
  1. PREGABALIN [Suspect]
     Active Substance: PREGABALIN
     Indication: Pain
     Dosage: 200 MILLIGRAM, BID (EVERY 0.5 DAY)
     Route: 048
  2. PREGABALIN [Suspect]
     Active Substance: PREGABALIN
     Dosage: 125 MILLIGRAM, BID (EVERY 0.5 DAY)
     Route: 048
  3. PREGABALIN [Suspect]
     Active Substance: PREGABALIN
     Dosage: 75 MILLIGRAM, QD (EVERY 1 DAY)
     Route: 048
  4. PREGABALIN [Suspect]
     Active Substance: PREGABALIN
     Dosage: 150 MILLIGRAM, BID (EVERY 0.5 DAY)
     Route: 048
  5. AMITRIPTYLINE HYDROCHLORIDE [Suspect]
     Active Substance: AMITRIPTYLINE HYDROCHLORIDE
     Indication: Depression
     Dosage: 25 MILLIGRAM, QD (EVERY 1 DAY)
     Route: 048
  6. BACLOFEN [Suspect]
     Active Substance: BACLOFEN
     Indication: Ataxia
     Dosage: 10 MILLIGRAM (EVERY 0.16 DAY)
     Route: 048
  7. BACLOFEN [Suspect]
     Active Substance: BACLOFEN
     Dosage: 60 MILLIGRAM
     Route: 048
  8. BACLOFEN [Suspect]
     Active Substance: BACLOFEN
     Dosage: 40 MILLIGRAM
     Route: 048
  9. BACLOFEN [Suspect]
     Active Substance: BACLOFEN
     Dosage: 10 MILLIGRAM (EVERY 0.33 DAY)
     Route: 048
     Dates: start: 20190927
  10. BACLOFEN [Suspect]
     Active Substance: BACLOFEN
     Dosage: 25 MILLIGRAM
     Route: 048
  11. CORTISONE [Suspect]
     Active Substance: CORTISONE
     Indication: Multiple sclerosis relapse
     Dosage: 1000 MILLIGRAM
     Route: 042
  12. OCREVUS [Suspect]
     Active Substance: OCRELIZUMAB
     Indication: Secondary progressive multiple sclerosis
     Dosage: 300 MILLIGRAM (EVERY 14 DAY)
     Route: 042
     Dates: start: 20190115
  13. OCREVUS [Suspect]
     Active Substance: OCRELIZUMAB
     Dosage: 600 MILLIGRAM (EVERY 181 DAY)
     Route: 042
     Dates: start: 20190115
  14. OCREVUS [Suspect]
     Active Substance: OCRELIZUMAB
     Dosage: 300 MILLIGRAM (EVERY 14 DAY)
     Route: 042
     Dates: start: 20190129
  15. OCREVUS [Suspect]
     Active Substance: OCRELIZUMAB
     Dosage: 600 MILLIGRAM
     Route: 042
     Dates: start: 20190927
  16. OCREVUS [Suspect]
     Active Substance: OCRELIZUMAB
     Dosage: 600 MILLIGRAM (EVERY 186 DAY)
     Route: 042
     Dates: start: 20200331, end: 20200331
  17. OCREVUS [Suspect]
     Active Substance: OCRELIZUMAB
     Dosage: 600 MILLIGRAM (EVERY 288 DAY)
     Route: 042
     Dates: start: 20240119
  18. NABIXIMOLS [Suspect]
     Active Substance: NABIXIMOLS
     Indication: Neuralgia
     Dosage: UNK
     Route: 065
  19. NABIXIMOLS [Suspect]
     Active Substance: NABIXIMOLS
     Indication: Muscle spasticity
  20. AMANTADINE [Concomitant]
     Active Substance: AMANTADINE
     Indication: Fatigue
     Dosage: 100 MILLIGRAM, BID (EVERY 0.5 DAY)
     Route: 065
  21. AMLODIPINE [Concomitant]
     Active Substance: AMLODIPINE BESYLATE
     Indication: Hypertension
     Dosage: 5 MILLIGRAM, QD (EVERY 1 DAY)
     Route: 065
  22. CANDESARTAN [Concomitant]
     Active Substance: CANDESARTAN
     Indication: Hypertension
     Dosage: 8 MILLIGRAM, QD (EVERY 1 DAY)
     Route: 065
     Dates: start: 20190927
  23. Novalgin [Concomitant]
     Indication: Pain
     Dosage: UNK
     Route: 065
     Dates: start: 20200331
  24. PANTOZOL [Concomitant]
     Active Substance: PANTOPRAZOLE SODIUM
     Indication: Gastrointestinal disorder prophylaxis
     Dosage: 40 MILLIGRAM, QD (EVERY 1 DAY)
     Route: 065
  25. POLYETHYLENE GLYCOLS [Concomitant]
     Active Substance: POLYETHYLENE GLYCOLS
     Indication: Product used for unknown indication
     Dosage: UNK
     Route: 065
  26. SALBUHEXAL [Concomitant]
     Active Substance: ALBUTEROL
     Indication: Product used for unknown indication
     Dosage: UNK
     Route: 065
  27. SYMBICORT [Concomitant]
     Active Substance: BUDESONIDE\FORMOTEROL FUMARATE DIHYDRATE
     Indication: Product used for unknown indication
     Dosage: UNK, BID (EVERY 0.5 DAY)
     Route: 065

REACTIONS (20)
  - Fall [Unknown]
  - Asthma [Unknown]
  - Muscle spasticity [Not Recovered/Not Resolved]
  - Blood immunoglobulin G decreased [Not Recovered/Not Resolved]
  - Cough [Not Recovered/Not Resolved]
  - Neuralgia [Not Recovered/Not Resolved]
  - Stomatitis [Recovered/Resolved]
  - Heart rate increased [Recovered/Resolved]
  - Oropharyngeal pain [Recovered/Resolved]
  - Breast mass [Recovered/Resolved]
  - Gait disturbance [Recovered/Resolved]
  - Gait disturbance [Not Recovered/Not Resolved]
  - Sleep disorder [Recovered/Resolved]
  - Pain [Recovered/Resolved]
  - Bronchitis [Recovered/Resolved]
  - Depression [Not Recovered/Not Resolved]
  - Fatigue [Not Recovered/Not Resolved]
  - Weight increased [Recovering/Resolving]
  - Alopecia [Recovered/Resolved]
  - Intentional product use issue [Unknown]

NARRATIVE: CASE EVENT DATE: 20190115
